FAERS Safety Report 9504498 (Version 1)
Quarter: 2013Q3

REPORT INFORMATION
  Report Type: Spontaneous
  Country: US (occurrence: US)
  Receive Date: 20130906
  Receipt Date: 20130906
  Transmission Date: 20140515
  Serious: Yes (Other)
  Sender: FDA-Public Use
  Company Number: US-TEVA-430481USA

PATIENT
  Sex: 0

DRUGS (2)
  1. FENTORA [Suspect]
     Indication: BREAKTHROUGH PAIN
     Route: 002
  2. ALCOHOL [Interacting]

REACTIONS (2)
  - Unresponsive to stimuli [Recovered/Resolved]
  - Drug interaction [Recovered/Resolved]
